FAERS Safety Report 9290565 (Version 1)
Quarter: 2013Q2

REPORT INFORMATION
  Report Type: Spontaneous
  Country: FR (occurrence: FR)
  Receive Date: 20130515
  Receipt Date: 20130515
  Transmission Date: 20140414
  Serious: Yes (Other)
  Sender: FDA-Public Use
  Company Number: FR-UCBSA-085304

PATIENT
  Age: 78 Year
  Sex: Female

DRUGS (6)
  1. VIMPAT [Suspect]
     Indication: EPILEPSY
     Route: 048
     Dates: end: 20130403
  2. VIMPAT [Suspect]
     Indication: EPILEPSY
     Route: 048
     Dates: start: 20130404, end: 20130404
  3. KARDEGIC [Concomitant]
     Dosage: DAILY DOSE: 75 MG
  4. PRINCI B [Concomitant]
  5. SPECIAFOLDINE [Concomitant]
  6. TRANSIPEG [Concomitant]

REACTIONS (3)
  - Bradycardia [Recovered/Resolved]
  - Hypothermia [Recovered/Resolved]
  - Disorientation [Unknown]
